FAERS Safety Report 22542028 (Version 2)
Quarter: 2024Q1

REPORT INFORMATION
  Report Type: Spontaneous
  Country: CN (occurrence: None)
  Receive Date: 20230609
  Receipt Date: 20240308
  Transmission Date: 20240409
  Serious: Yes (Other)
  Sender: FDA-Public Use
  Company Number: 2023A131652

PATIENT
  Age: 64 Year
  Sex: Female

DRUGS (5)
  1. OSIMERTINIB [Suspect]
     Active Substance: OSIMERTINIB
     Indication: Lung adenocarcinoma
     Route: 048
     Dates: start: 202104
  2. DABRAFENIB [Concomitant]
     Active Substance: DABRAFENIB
     Dates: start: 202104
  3. ICOTINIB [Concomitant]
     Active Substance: ICOTINIB
     Dosage: 125 MG T.I.D
  4. AFATINIB [Concomitant]
     Active Substance: AFATINIB
     Dates: start: 201808
  5. TRAMETINIB [Concomitant]
     Active Substance: TRAMETINIB
     Dates: start: 202104

REACTIONS (7)
  - Malignant neoplasm progression [Unknown]
  - Acquired gene mutation [Unknown]
  - Drug resistance [Unknown]
  - Rash [Recovering/Resolving]
  - Decreased appetite [Unknown]
  - Fatigue [Unknown]
  - Pyrexia [Recovering/Resolving]
